FAERS Safety Report 8660093 (Version 2)
Quarter: 2014Q2

REPORT INFORMATION
  Report Type: Spontaneous
  Country: US (occurrence: US)
  Receive Date: 20120711
  Receipt Date: 20140613
  Transmission Date: 20141212
  Serious: No
  Sender: FDA-Public Use
  Company Number: US-ASTRAZENECA-2012SE42995

PATIENT
  Age: 48 Year
  Sex: Female
  Weight: 68.9 kg

DRUGS (8)
  1. SYMBICORT PMDI [Suspect]
     Indication: ASTHMA
     Dosage: 160/4.5, 2 PUFFS, TWO TIMES A DAY
     Route: 055
     Dates: start: 201204
  2. SYMBICORT PMDI [Suspect]
     Indication: THROAT TIGHTNESS
     Dosage: 160/4.5, 2 PUFFS, TWO TIMES A DAY
     Route: 055
     Dates: start: 201204
  3. SEROQUEL XR [Suspect]
     Indication: DEPRESSION
     Route: 048
     Dates: start: 20120207
  4. SEROQUEL XR [Suspect]
     Indication: DEPRESSION
     Route: 048
  5. SEROQUEL XR [Suspect]
     Indication: DEPRESSION
     Dosage: SPLITTING IN HALF, BID
     Route: 048
     Dates: start: 201402
  6. NEXIUM [Suspect]
     Indication: DYSPEPSIA
     Route: 048
     Dates: start: 2012
  7. OMEPRAZOLE [Concomitant]
     Indication: GASTROOESOPHAGEAL REFLUX DISEASE
     Dosage: DALY
     Route: 048
     Dates: start: 2012
  8. BENADRYL [Concomitant]
     Indication: MULTIPLE ALLERGIES
     Route: 048
     Dates: start: 201402

REACTIONS (9)
  - Feeling abnormal [Not Recovered/Not Resolved]
  - Fatigue [Recovered/Resolved]
  - Depression [Not Recovered/Not Resolved]
  - Anxiety [Not Recovered/Not Resolved]
  - Hypersensitivity [Not Recovered/Not Resolved]
  - Insomnia [Not Recovered/Not Resolved]
  - Drug dose omission [Not Recovered/Not Resolved]
  - Off label use [Recovered/Resolved]
  - Intentional product misuse [Recovered/Resolved]
